FAERS Safety Report 8841882 (Version 1)
Quarter: 2012Q4

REPORT INFORMATION
  Report Type: 
  Country: US (occurrence: US)
  Receive Date: 20121016
  Receipt Date: 20121016
  Transmission Date: 20130627
  Serious: Yes (Hospitalization)
  Sender: FDA-Public Use
  Company Number: US-BAYER-2012-105700

PATIENT
  Age: 23 Year
  Sex: Female

DRUGS (3)
  1. YASMIN [Suspect]
  2. MULTIVITAMIN [Concomitant]
     Route: 048
  3. K-LOR [Concomitant]
     Indication: HYPOKALAEMIA

REACTIONS (2)
  - Pulmonary embolism [None]
  - Deep vein thrombosis [None]
